FAERS Safety Report 15863980 (Version 1)
Quarter: 2019Q1

REPORT INFORMATION
  Report Type: Report from Study
  Country: BR (occurrence: BR)
  Receive Date: 20190124
  Receipt Date: 20190124
  Transmission Date: 20190417
  Serious: Yes (Hospitalization, Other)
  Sender: FDA-Public Use
  Company Number: BR-JNJFOC-20190119799

PATIENT
  Sex: Female

DRUGS (4)
  1. PREDNISONE. [Concomitant]
     Active Substance: PREDNISONE
     Route: 065
  2. VIMOVO [Concomitant]
     Active Substance: ESOMEPRAZOLE MAGNESIUM\NAPROXEN
     Route: 065
  3. INFLIXIMAB, RECOMBINANT [Suspect]
     Active Substance: INFLIXIMAB
     Indication: RHEUMATOID ARTHRITIS
     Route: 042
     Dates: start: 2015, end: 201707
  4. AMITRIPTYLINE [Concomitant]
     Active Substance: AMITRIPTYLINE
     Route: 065

REACTIONS (13)
  - Depression [Recovered/Resolved]
  - Alopecia [Unknown]
  - Liver disorder [Unknown]
  - Nephrolithiasis [Unknown]
  - Hypersensitivity [Unknown]
  - Swelling face [Unknown]
  - Vomiting [Unknown]
  - Hypertension [Recovered/Resolved]
  - Visual impairment [Unknown]
  - Nausea [Unknown]
  - Feeling cold [Unknown]
  - Cardiac arrest [Unknown]
  - Vaginal haemorrhage [Recovered/Resolved]
